FAERS Safety Report 7773774-X (Version None)
Quarter: 2011Q3

REPORT INFORMATION
  Report Type: 
  Country: None (occurrence: None)
  Receive Date: 20110923
  Receipt Date: 20110912
  Transmission Date: 20111222
  Serious: Yes (Other)
  Sender: FDA-Public Use
  Company Number: US-ELI_LILLY_AND_COMPANY-US201109003512

PATIENT
  Age: 79 Year
  Sex: Female

DRUGS (10)
  1. LORAZEPAM [Concomitant]
  2. THROAT [Concomitant]
  3. FORTEO [Suspect]
     Indication: OSTEOPOROSIS
     Dosage: UNK, UNKNOWN
     Route: 065
     Dates: start: 20090101, end: 20110912
  4. PROCRIT [Concomitant]
  5. LIDOCAINE [Concomitant]
  6. PREDNISONE [Concomitant]
  7. DILAUDID [Concomitant]
  8. CALCIUM CARBONATE [Concomitant]
  9. OXYCODONE [Concomitant]
  10. VITAMIN D [Concomitant]

REACTIONS (1)
  - BREAST CANCER [None]
